FAERS Safety Report 21163960 (Version 1)
Quarter: 2022Q3

REPORT INFORMATION
  Report Type: Report from Study
  Country: US (occurrence: US)
  Receive Date: 20220803
  Receipt Date: 20220803
  Transmission Date: 20221027
  Serious: Yes (Hospitalization)
  Sender: FDA-Public Use
  Company Number: US-ABBVIE-22K-163-4489800-00

PATIENT
  Age: 69 Year
  Sex: Female
  Weight: 65.830 kg

DRUGS (2)
  1. SYNTHROID [Suspect]
     Active Substance: LEVOTHYROXINE SODIUM
     Indication: Thyroid disorder
     Route: 065
     Dates: start: 1992
  2. MODERNA COVID-19 VACCINE [Concomitant]
     Active Substance: ELASOMERAN
     Indication: COVID-19 immunisation
     Dosage: BOOSTER
     Route: 030

REACTIONS (1)
  - Mammoplasty [Recovered/Resolved]

NARRATIVE: CASE EVENT DATE: 20220428
